FAERS Safety Report 20714600 (Version 2)
Quarter: 2022Q2

REPORT INFORMATION
  Report Type: Spontaneous
  Country: US (occurrence: US)
  Receive Date: 20220415
  Receipt Date: 20220428
  Transmission Date: 20220720
  Serious: Yes (Hospitalization, Other)
  Sender: FDA-Public Use
  Company Number: US-009507513-2204USA003930

PATIENT
  Age: 86 Year
  Sex: Male

DRUGS (2)
  1. KEYTRUDA [Suspect]
     Active Substance: PEMBROLIZUMAB
     Indication: Head and neck cancer
     Dosage: UNK
     Dates: start: 202104, end: 202112
  2. HYDROCORTISONE [Concomitant]
     Active Substance: HYDROCORTISONE
     Dosage: UNK

REACTIONS (3)
  - Adrenal insufficiency [Not Recovered/Not Resolved]
  - Vertigo [Unknown]
  - Balance disorder [Unknown]

NARRATIVE: CASE EVENT DATE: 20211101
